FAERS Safety Report 9727445 (Version 1)
Quarter: 2013Q4

REPORT INFORMATION
  Report Type: Spontaneous
  Country: FR (occurrence: None)
  Receive Date: 20131127
  Receipt Date: 20131127
  Transmission Date: 20140711
  Serious: No
  Sender: FDA-Public Use
  Company Number: B0946621A

PATIENT
  Sex: 0

DRUGS (3)
  1. MELPHALAN [Suspect]
     Indication: PLASMA CELL MYELOMA
  2. PREDNISONE [Suspect]
     Indication: PLASMA CELL MYELOMA
  3. UNKNOWN [Suspect]
     Indication: PLASMA CELL MYELOMA

REACTIONS (1)
  - Pyrexia [None]
